FAERS Safety Report 9324004 (Version 1)
Quarter: 2013Q2

REPORT INFORMATION
  Report Type: Spontaneous
  Country: NL (occurrence: NL)
  Receive Date: 20130603
  Receipt Date: 20130603
  Transmission Date: 20140414
  Serious: Yes (Hospitalization)
  Sender: FDA-Public Use
  Company Number: NL-PFIZER INC-2013162586

PATIENT
  Age: 48 Year
  Sex: Female
  Weight: 80 kg

DRUGS (2)
  1. DOXYCYCLINE HYCLATE [Suspect]
     Indication: LYME DISEASE
     Dosage: 100 MG, 2X/DAY
     Route: 048
     Dates: start: 201212, end: 20121218
  2. CITALOPRAM [Concomitant]
     Dosage: 20 MG, DAILY
     Dates: start: 1996

REACTIONS (1)
  - Pancreatitis [Recovered/Resolved]
